FAERS Safety Report 6854533-9 (Version None)
Quarter: 2010Q3

REPORT INFORMATION
  Report Type: 
  Country: None (occurrence: None)
  Receive Date: 20100717
  Receipt Date: 20080107
  Transmission Date: 20110219
  Serious: No
  Sender: FDA-Public Use
  Company Number: US-PFIZER INC-2008003069

PATIENT
  Age: 58 Year
  Sex: Female
  Weight: 67.13 kg

DRUGS (4)
  1. CHANTIX [Suspect]
     Indication: SMOKING CESSATION THERAPY
     Dates: start: 20071221
  2. ZOCOR [Concomitant]
  3. PRILOSEC [Concomitant]
  4. VITAMINS [Concomitant]

REACTIONS (6)
  - CHEST PAIN [None]
  - GASTROOESOPHAGEAL REFLUX DISEASE [None]
  - NAUSEA [None]
  - SLEEP DISORDER [None]
  - UNEVALUABLE EVENT [None]
  - VOMITING [None]
